FAERS Safety Report 23964842 (Version 1)
Quarter: 2024Q2

REPORT INFORMATION
  Report Type: Spontaneous
  Country: PT (occurrence: PT)
  Receive Date: 20240612
  Receipt Date: 20240612
  Transmission Date: 20240716
  Serious: Yes (Hospitalization, Other)
  Sender: FDA-Public Use
  Company Number: PT-EMA-DD-20210902-Bisht_p-122155

PATIENT
  Sex: Male

DRUGS (2)
  1. ACETAMINOPHEN [Suspect]
     Active Substance: ACETAMINOPHEN
     Indication: Back pain
     Route: 064
  2. DICLOFENAC [Suspect]
     Active Substance: DICLOFENAC
     Indication: Back pain
     Dosage: TIME INTERVAL: 1 TOTAL
     Route: 064

REACTIONS (8)
  - Pulmonary hypertension [Recovered/Resolved]
  - Right-to-left cardiac shunt [Recovered/Resolved]
  - Ventricular hypertrophy [Recovered/Resolved]
  - Pulmonary valve disease [Recovered/Resolved]
  - Atrial septal defect [Recovered/Resolved]
  - Ductus arteriosus premature closure [Recovered/Resolved]
  - Tricuspid valve incompetence [Recovered/Resolved]
  - Foetal exposure during pregnancy [Recovered/Resolved]
